FAERS Safety Report 5255510-4 (Version None)
Quarter: 2007Q1

REPORT INFORMATION
  Report Type: 
  Country: None (occurrence: None)
  Receive Date: 20070305
  Receipt Date: 20070222
  Transmission Date: 20070707
  Serious: Yes (Hospitalization)
  Sender: FDA-Public Use
  Company Number: US-AMGEN-US210013

PATIENT
  Sex: Female
  Weight: 72 kg

DRUGS (1)
  1. EPOGEN [Suspect]
     Indication: DIALYSIS
     Route: 058
     Dates: start: 20051201

REACTIONS (3)
  - HAEMOGLOBIN DECREASED [None]
  - INJECTION SITE PAIN [None]
  - PNEUMONIA [None]
